FAERS Safety Report 10754095 (Version 1)
Quarter: 2015Q1

REPORT INFORMATION
  Report Type: Spontaneous
  Country: US (occurrence: None)
  Receive Date: 20150129
  Receipt Date: 20150129
  Transmission Date: 20150721
  Serious: No
  Sender: FDA-Public Use
  Company Number: None

PATIENT
  Age: 19 Year
  Sex: Female
  Weight: 68.04 kg

DRUGS (1)
  1. NORPLANT [Suspect]
     Active Substance: LEVONORGESTREL
     Dates: end: 19981110

REACTIONS (5)
  - Myalgia [None]
  - Hypoaesthesia [None]
  - Implant site reaction [None]
  - Limb discomfort [None]
  - Joint range of motion decreased [None]

NARRATIVE: CASE EVENT DATE: 19931110
